FAERS Safety Report 6318056-8 (Version None)
Quarter: 2009Q3

REPORT INFORMATION
  Report Type: 
  Country: None (occurrence: None)
  Receive Date: 20090821
  Receipt Date: 20090813
  Transmission Date: 20100115
  Serious: Yes (Hospitalization, Other)
  Sender: FDA-Public Use
  Company Number: BR-NOVOPROD-288039

PATIENT
  Age: 66 Year
  Sex: Male
  Weight: 70 kg

DRUGS (13)
  1. NOVOLOG MIX 70/30 [Suspect]
     Indication: TYPE 2 DIABETES MELLITUS
     Dosage: 30 IU, QD (20+10)
     Route: 058
  2. NOVORAPID [Concomitant]
     Indication: DIABETES MELLITUS
     Dosage: UNK, UNK
  3. PANTOPRAZOLE SODIUM [Concomitant]
     Dosage: 40 MG, QD
     Route: 048
  4. SUSTRATE [Concomitant]
     Dosage: 20 MG, QD
     Route: 048
  5. LASIX [Concomitant]
     Dosage: 40 MG, QD
     Route: 048
  6. ALLOPURINOL [Concomitant]
     Dosage: 300 MG, QD
  7. ASPIRIN [Concomitant]
     Dosage: 100 MG, QD
  8. SULFAMETHOXAZOLE AND TRIMETHOPRIM [Concomitant]
     Dosage: 400 MG + 80 MG
     Route: 048
  9. VITAMIN B1 TAB [Concomitant]
     Dosage: 300 MG, QD
     Route: 048
  10. CALCITRIOL [Concomitant]
     Dosage: .25 MG, QD
     Route: 048
  11. FLUIMUCIL                          /00082801/ [Concomitant]
     Dosage: 600 MG, QD
     Route: 048
  12. RIVOTRIL [Concomitant]
     Dosage: 5 DROPS
     Route: 048
  13. ACETAMINOPHEN [Concomitant]
     Dosage: 750 MG, PRN
     Route: 048

REACTIONS (1)
  - LYMPHOMA [None]
